FAERS Safety Report 24948403 (Version 2)
Quarter: 2025Q1

REPORT INFORMATION
  Report Type: Spontaneous
  Country: IT (occurrence: IT)
  Receive Date: 20250210
  Receipt Date: 20250228
  Transmission Date: 20250409
  Serious: Yes (Life-Threatening)
  Sender: CIPLA
  Company Number: IT-MINISAL02-1023075

PATIENT

DRUGS (1)
  1. RIVAROXABAN [Suspect]
     Active Substance: RIVAROXABAN
     Indication: Atrial fibrillation
     Route: 048
     Dates: start: 20250114, end: 20250114

REACTIONS (1)
  - Allergic reaction to excipient [Recovering/Resolving]

NARRATIVE: CASE EVENT DATE: 20250114
